FAERS Safety Report 10332594 (Version 1)
Quarter: 2014Q3

REPORT INFORMATION
  Report Type: Spontaneous
  Country: BR (occurrence: BR)
  Receive Date: 20140722
  Receipt Date: 20140722
  Transmission Date: 20150326
  Serious: Yes (Death)
  Sender: FDA-Public Use
  Company Number: BR-GLAXOSMITHKLINE-B0999331A

PATIENT
  Age: 22 Year
  Sex: Female

DRUGS (2)
  1. VOTRIENT [Suspect]
     Active Substance: PAZOPANIB HYDROCHLORIDE
     Indication: METASTATIC NEOPLASM
     Dosage: 800MG PER DAY
     Route: 048
     Dates: start: 20140119
  2. PURAN [Concomitant]
     Active Substance: LEVOTHYROXINE SODIUM

REACTIONS (4)
  - Asthenia [Not Recovered/Not Resolved]
  - Malignant neoplasm progression [Fatal]
  - Decreased appetite [Recovering/Resolving]
  - Hair colour changes [Not Recovered/Not Resolved]
